FAERS Safety Report 11216396 (Version 3)
Quarter: 2019Q1

REPORT INFORMATION
  Report Type: Spontaneous
  Country: US (occurrence: US)
  Receive Date: 20150624
  Receipt Date: 20190205
  Transmission Date: 20190417
  Serious: Yes (Hospitalization, Other)
  Sender: FDA-Public Use
  Company Number: US-GLAXOSMITHKLINE-US2015088281

PATIENT
  Age: 63 Year
  Sex: Female

DRUGS (9)
  1. CARVEDILOL. [Suspect]
     Active Substance: CARVEDILOL
     Indication: LABILE BLOOD PRESSURE
     Dosage: 12.50 MG, QID
     Route: 048
     Dates: start: 2013
  2. CARVEDILOL PHOSPHATE. [Suspect]
     Active Substance: CARVEDILOL PHOSPHATE
     Indication: PRODUCT USED FOR UNKNOWN INDICATION
     Dosage: UNK, U
     Route: 065
  3. CARVEDILOL. [Suspect]
     Active Substance: CARVEDILOL
     Indication: AUTONOMIC NERVOUS SYSTEM IMBALANCE
  4. COREG [Suspect]
     Active Substance: CARVEDILOL
     Indication: LABILE BLOOD PRESSURE
     Dosage: 12.50 MG, QID
     Route: 048
  5. COREG [Suspect]
     Active Substance: CARVEDILOL
     Indication: AUTONOMIC NERVOUS SYSTEM IMBALANCE
  6. ZOFRAN [Concomitant]
     Active Substance: ONDANSETRON HYDROCHLORIDE
     Dosage: UNK, PRN
  7. ATIVAN [Concomitant]
     Active Substance: LORAZEPAM
     Dosage: UNK, PRN
  8. ASPIRIN. [Concomitant]
     Active Substance: ASPIRIN
  9. PEPCID [Concomitant]
     Active Substance: FAMOTIDINE
     Dosage: UNK, PRN

REACTIONS (4)
  - Impaired gastric emptying [Recovering/Resolving]
  - Overdose [Unknown]
  - Hypotension [Unknown]
  - Drug ineffective [Recovered/Resolved]

NARRATIVE: CASE EVENT DATE: 201505
